FAERS Safety Report 12958051 (Version 1)
Quarter: 2016Q4

REPORT INFORMATION
  Report Type: Spontaneous
  Country: US (occurrence: US)
  Receive Date: 20161120
  Receipt Date: 20161120
  Transmission Date: 20170207
  Serious: No
  Sender: FDA-Public Use
  Company Number: US-B.I. PHARMACEUTICALS,INC./RIDGEFIELD-2016-BI-079366

PATIENT
  Sex: Female

DRUGS (8)
  1. CLONAZEPAM. [Concomitant]
     Active Substance: CLONAZEPAM
     Indication: ANXIETY
     Dosage: 1 TABLET 2 TIMES A DAY;  FORM STRENGTH: 0.5MG; FORMULATION: TABLET
     Route: 048
  2. RANITIDINE. [Concomitant]
     Active Substance: RANITIDINE
     Indication: PRODUCT USED FOR UNKNOWN INDICATION
     Dosage: 1 TABLET 2 TIMES A DAY;  FORM STRENGTH: 150MG; FORMULATION: TABLET
     Route: 048
  3. GABAPENTIN. [Concomitant]
     Active Substance: GABAPENTIN
     Indication: BURNING MOUTH SYNDROME
     Dosage: 1 CAPSULE 3 TIMES A DAY;  FORM STRENGTH: 400MG; FORMULATION: CAPSULE
     Route: 048
  4. AMLODIPINE [Concomitant]
     Active Substance: AMLODIPINE BESYLATE
     Indication: HYPERTENSION
     Dosage: 1 TABLET ONCE A DAY;  FORM STRENGTH: 5MG; FORMULATION: TABLET
     Route: 048
  5. ADVAIR HFA [Concomitant]
     Active Substance: FLUTICASONE PROPIONATE\SALMETEROL XINAFOATE
     Indication: CHRONIC OBSTRUCTIVE PULMONARY DISEASE
     Dosage: 1 INHALATION 2 TIMES A DAY;  FORM STRENGTH: 250/50MCG; FORMULATION: INHALATION SPRAY
     Route: 055
  6. SPIRIVA [Suspect]
     Active Substance: TIOTROPIUM BROMIDE MONOHYDRATE
     Indication: CHRONIC OBSTRUCTIVE PULMONARY DISEASE
     Dosage: 1 CAPSULE ONCE A DAY;  FORM STRENGTH: 18 MCG; FORMULATION: CAPSULE? ADMINISTRATION CORRECT? YES ?ACT
     Route: 055
     Dates: start: 2008
  7. MONTELUKAST [Concomitant]
     Active Substance: MONTELUKAST SODIUM
     Indication: DYSPNOEA
     Dosage: 1 TABLET ONCE A DAY;  FORM STRENGTH: 10MG; FORMULATION: TABLET
     Route: 048
  8. BUSPAR [Concomitant]
     Active Substance: BUSPIRONE HYDROCHLORIDE
     Indication: ANXIETY
     Dosage: 1 TABLET 2 TIMES A DAY;  FORM STRENGTH: 7.5MG; FORMULATION: TABLET
     Route: 048

REACTIONS (1)
  - Glucose tolerance impaired [Unknown]

NARRATIVE: CASE EVENT DATE: 2015
